FAERS Safety Report 5205855-9 (Version None)
Quarter: 2007Q1

REPORT INFORMATION
  Report Type: 
  Country: None (occurrence: None)
  Receive Date: 20070105
  Receipt Date: 20070105
  Transmission Date: 20070707
  Serious: Yes (Hospitalization)
  Sender: FDA-Public Use
  Company Number: None

PATIENT
  Sex: Male
  Weight: 75.7507 kg

DRUGS (10)
  1. PLAVIX [Suspect]
     Indication: CARDIAC FAILURE CONGESTIVE
     Dosage: 75MG DAILY PO
     Route: 048
     Dates: start: 20020601
  2. HYDROXYCHLORQUINE SULFATE [Concomitant]
  3. NPH INSULIN [Concomitant]
  4. SERTRALINE [Concomitant]
  5. FOLIC ACID [Concomitant]
  6. ACETAMINOPHEN [Concomitant]
  7. CALCIUM/VITAMIN D [Concomitant]
  8. LISINOPRIL [Concomitant]
  9. LORATADINE [Concomitant]
  10. PREDNISONE TAB [Concomitant]

REACTIONS (5)
  - BLOOD PRESSURE ORTHOSTATIC DECREASED [None]
  - DEHYDRATION [None]
  - DIZZINESS [None]
  - HAEMATOCHEZIA [None]
  - RECTAL HAEMORRHAGE [None]
